FAERS Safety Report 23757882 (Version 1)
Quarter: 2024Q2

REPORT INFORMATION
  Report Type: Spontaneous
  Country: GB (occurrence: GB)
  Receive Date: 20240418
  Receipt Date: 20240418
  Transmission Date: 20240715
  Serious: Yes (Other)
  Sender: FDA-Public Use
  Company Number: None

PATIENT
  Age: 74 Year
  Sex: Male
  Weight: 133 kg

DRUGS (18)
  1. FELODIPINE [Suspect]
     Active Substance: FELODIPINE
     Indication: Product used for unknown indication
     Dosage: 2.5 MILLIGRAM, UNK
     Route: 065
  2. AMLODIPINE [Concomitant]
     Active Substance: AMLODIPINE BESYLATE
     Dosage: 1 DOSAGE FORM, QD
     Route: 065
     Dates: start: 20240115
  3. DAPAGLIFLOZIN [Concomitant]
     Active Substance: DAPAGLIFLOZIN
     Dosage: 1 DOSAGE FORM, QD
     Route: 065
     Dates: start: 20230823, end: 20240219
  4. DARIFENACIN [Concomitant]
     Active Substance: DARIFENACIN
     Dosage: 1 DOSAGE FORM, QD
     Route: 065
     Dates: start: 20231018
  5. MINERAL OIL\PETROLATUM\WAX, EMULSIFYING [Concomitant]
     Active Substance: MINERAL OIL\PETROLATUM\WAX, EMULSIFYING
     Dosage: UNK (AS ADVISED)
     Route: 065
     Dates: start: 20230426
  6. EZETIMIBE [Concomitant]
     Active Substance: EZETIMIBE
     Dosage: 1 DOSAGE FORM, QD (AT NIGHT)
     Route: 065
     Dates: start: 20231018
  7. FINASTERIDE [Concomitant]
     Active Substance: FINASTERIDE
     Dosage: 1 DOSAGE FORM, QD
     Route: 065
     Dates: start: 20240129
  8. FUROSEMIDE [Concomitant]
     Active Substance: FUROSEMIDE
     Dosage: 1 DOSAGE FORM, QD
     Route: 065
     Dates: start: 20230726, end: 20240219
  9. GLICLAZIDE [Concomitant]
     Active Substance: GLICLAZIDE
     Dosage: 3 DOSAGE FORM (TAKE 2 WITH BREAKFAST AND ONE AT LUNCH)
     Route: 065
     Dates: start: 20231018, end: 20240219
  10. HUMULIN L [Concomitant]
     Active Substance: INSULIN HUMAN
     Dosage: UNK (USE AS DIRECTED - ITS REALLY IMPORTANT THAT YOU...)
     Route: 065
     Dates: start: 20240219
  11. LACTULOSE [Concomitant]
     Active Substance: LACTULOSE
     Dosage: 15 MILLILITER, BID
     Route: 065
     Dates: start: 20240208
  12. LANSOPRAZOLE [Concomitant]
     Active Substance: LANSOPRAZOLE
     Dosage: 1 DOSAGE FORM, QD
     Route: 065
     Dates: start: 20231018
  13. LATANOPROST [Concomitant]
     Active Substance: LATANOPROST
     Dosage: 2 DOSAGE FORM, QD (ONE DROP ONCE DAILY EACH EYE AT NIGHT)
     Route: 047
     Dates: start: 20231018
  14. METFORMIN [Concomitant]
     Active Substance: METFORMIN HYDROCHLORIDE
     Dosage: 1 DOSAGE FORM, QD
     Route: 065
     Dates: start: 20230621, end: 20240219
  15. RAMIPRIL [Concomitant]
     Active Substance: RAMIPRIL
     Dosage: 1 DOSAGE FORM, QD
     Route: 065
     Dates: start: 20230905, end: 20240219
  16. ROSUVASTATIN [Concomitant]
     Active Substance: ROSUVASTATIN
     Dosage: 1 DOSAGE FORM, QD
     Route: 065
     Dates: start: 20231018
  17. TAMSULOSIN HYDROCHLORIDE [Concomitant]
     Active Substance: TAMSULOSIN HYDROCHLORIDE
     Dosage: 1 DOSAGE FORM, QD (AT NIGHT)
     Route: 065
     Dates: start: 20231018
  18. TIMOLOL [Concomitant]
     Active Substance: TIMOLOL
     Dosage: 2 DOSAGE FORM, BID (ONE DROP TWICE DAILY EACH EYE)
     Route: 047
     Dates: start: 20231018

REACTIONS (1)
  - Joint swelling [Unknown]
